FAERS Safety Report 4625897-1 (Version None)
Quarter: 2005Q1

REPORT INFORMATION
  Report Type: 
  Country: None (occurrence: None)
  Receive Date: 20050330
  Receipt Date: 20050321
  Transmission Date: 20050727
  Serious: Yes (Other)
  Sender: FDA-Public Use
  Company Number: 2004226176US

PATIENT
  Age: 64 Year
  Sex: Male
  Weight: 63.5036 kg

DRUGS (12)
  1. BEXTRA [Suspect]
     Indication: ARTHROPATHY
     Dosage: (10 MG), ORAL
     Route: 048
     Dates: start: 20020101
  2. BEXTRA [Suspect]
     Indication: MUSCULOSKELETAL DISCOMFORT
     Dosage: (10 MG), ORAL
     Route: 048
     Dates: start: 20020101
  3. BEXTRA [Suspect]
     Indication: OSTEOARTHRITIS
     Dosage: (10 MG), ORAL
     Route: 048
     Dates: start: 20020101
  4. CELEBREX [Suspect]
     Indication: ARTHROPATHY
     Dosage: ORAL
     Route: 048
     Dates: end: 20020101
  5. CELEBREX [Suspect]
     Indication: LIMB DISCOMFORT
     Dosage: ORAL
     Route: 048
     Dates: end: 20020101
  6. CELEBREX [Suspect]
     Indication: MUSCULOSKELETAL DISCOMFORT
     Dosage: ORAL
     Route: 048
     Dates: end: 20020101
  7. SIMVASTATIN [Concomitant]
  8. ALLOPURINOL [Concomitant]
  9. METOPROLOL TARTRATE [Concomitant]
  10. ACETYLSALICYLIC CID (ACETYLSALICYLIC ACID) [Concomitant]
  11. ALL OTHER THERAPETUIC PRODUCTS (ALL OTHER THERAPEUTIC PRODUCTS) [Concomitant]
  12. VITAMINS NOS (VITAMINS NOS) [Concomitant]

REACTIONS (5)
  - CARDIAC OPERATION [None]
  - DERMATITIS CONTACT [None]
  - GASTRIC DISORDER [None]
  - PAIN [None]
  - RASH PAPULAR [None]
